FAERS Safety Report 20929171 (Version 2)
Quarter: 2022Q3

REPORT INFORMATION
  Report Type: Spontaneous
  Country: FR (occurrence: FR)
  Receive Date: 20220608
  Receipt Date: 20220721
  Transmission Date: 20221026
  Serious: Yes (Life-Threatening, Other)
  Sender: FDA-Public Use
  Company Number: FR-CELLTRION INC.-2022FR008293

PATIENT

DRUGS (1)
  1. RITUXIMAB [Suspect]
     Active Substance: RITUXIMAB
     Indication: Anti-myelin-associated glycoprotein associated polyneuropathy
     Dosage: 375 MG/M2, 1/WEEK
     Route: 042

REACTIONS (4)
  - Hepatic cytolysis [Recovered/Resolved]
  - Neurological symptom [Unknown]
  - Condition aggravated [Unknown]
  - Product use in unapproved indication [Unknown]
